FAERS Safety Report 7371669-7 (Version None)
Quarter: 2011Q1

REPORT INFORMATION
  Report Type: 
  Country: None (occurrence: None)
  Receive Date: 20110324
  Receipt Date: 20110314
  Transmission Date: 20110831
  Serious: Yes (Death, Hospitalization, Other)
  Sender: FDA-Public Use
  Company Number: BR-SANOFI-AVENTIS-2011SA004206

PATIENT
  Sex: Female
  Weight: 50 kg

DRUGS (8)
  1. ALENDRONATE SODIUM [Concomitant]
  2. NOVOLIN 70/30 [Concomitant]
  3. OMEPRAZOLE [Concomitant]
  4. LANTUS [Suspect]
     Route: 058
     Dates: start: 20080601
  5. AAS INFANTIL [Concomitant]
  6. INSULIN PEN NOS [Suspect]
  7. LOSARTAN POTASSIUM [Concomitant]
  8. AMIODARONE HCL [Concomitant]

REACTIONS (5)
  - URINE ODOUR ABNORMAL [None]
  - MULTI-ORGAN FAILURE [None]
  - CONSTIPATION [None]
  - BLOOD PRESSURE INCREASED [None]
  - CEREBROVASCULAR ACCIDENT [None]
